FAERS Safety Report 21369382 (Version 1)
Quarter: 2022Q3

REPORT INFORMATION
  Report Type: Spontaneous
  Country: GB (occurrence: None)
  Receive Date: 20220923
  Receipt Date: 20220923
  Transmission Date: 20221027
  Serious: Yes (Other)
  Sender: FDA-Public Use
  Company Number: GB-MHRA-MED-202209101754517970-GWTHR

PATIENT

DRUGS (1)
  1. AMOXICILLIN [Suspect]
     Active Substance: AMOXICILLIN
     Indication: Sinusitis
     Dosage: 250MG THREE TIMES A DAY; ;

REACTIONS (6)
  - Headache [Recovering/Resolving]
  - Vulvovaginal candidiasis [Recovering/Resolving]
  - Abdominal pain upper [Recovering/Resolving]
  - Oropharyngeal pain [Not Recovered/Not Resolved]
  - Poor quality sleep [Not Recovered/Not Resolved]
  - Depressed mood [Not Recovered/Not Resolved]
